FAERS Safety Report 23083819 (Version 1)
Quarter: 2023Q4

REPORT INFORMATION
  Report Type: Spontaneous
  Country: US (occurrence: None)
  Receive Date: 20231018
  Receipt Date: 20231018
  Transmission Date: 20240109
  Serious: Yes (Hospitalization)
  Sender: FDA-Public Use
  Company Number: None

PATIENT
  Age: 73 Year
  Sex: Female
  Weight: 96 kg

DRUGS (2)
  1. PREGABALIN [Suspect]
     Active Substance: PREGABALIN
     Dates: start: 20211021, end: 20221215
  2. DIAZEPAM [Suspect]
     Active Substance: DIAZEPAM
     Dosage: FREQUENCY : TWICE A DAY;?
     Route: 048
     Dates: start: 19950901, end: 20221215

REACTIONS (11)
  - Blood creatinine increased [None]
  - Blood glucose increased [None]
  - Urinary retention [None]
  - Thirst [None]
  - Asthenia [None]
  - Dizziness postural [None]
  - Treatment noncompliance [None]
  - Confusional state [None]
  - Acute kidney injury [None]
  - Tooth injury [None]
  - Hypophagia [None]

NARRATIVE: CASE EVENT DATE: 20221215
